FAERS Safety Report 8374586-9 (Version None)
Quarter: 2012Q2

REPORT INFORMATION
  Report Type: 
  Country: None (occurrence: None)
  Receive Date: 20120521
  Receipt Date: 20120515
  Transmission Date: 20120825
  Serious: Yes (Death, Hospitalization, Congenital Anomaly, Other)
  Sender: FDA-Public Use
  Company Number: DE-TEVA-336882GER

PATIENT
  Age: 0 Year
  Sex: Female
  Weight: 2.965 kg

DRUGS (9)
  1. CETIRIZINE HCL [Concomitant]
     Indication: HYPERSENSITIVITY
     Route: 064
  2. FOLIO FORTE [Concomitant]
     Indication: PROPHYLAXIS OF NEURAL TUBE DEFECT
     Dosage: .8 MILLIGRAM;
     Route: 064
     Dates: start: 20100919, end: 20110404
  3. EBENOL [Concomitant]
     Indication: HYPERSENSITIVITY
     Route: 064
     Dates: start: 20101114, end: 20101117
  4. EMSER NASENSPRAY [Concomitant]
     Indication: SELF-MEDICATION
     Route: 064
     Dates: start: 20101220, end: 20101226
  5. METFORMIN HCL [Suspect]
     Indication: GLUCOSE TOLERANCE IMPAIRED
     Route: 064
  6. LEVOTHYROXINE SODIUM [Concomitant]
     Indication: HYPOTHYROIDISM
     Dosage: 100 MICROGRAM;
     Route: 064
     Dates: start: 20100913, end: 20110626
  7. ALBUTEROL [Concomitant]
     Indication: BRONCHITIS
     Route: 064
     Dates: start: 20101220, end: 20101225
  8. PROGESTERONE [Concomitant]
     Indication: POLYCYSTIC OVARIES
     Dosage: 100 MILLIGRAM;
     Route: 064
     Dates: start: 20100912, end: 20101114
  9. KADEFUNGIN 3 KOMBI-PACKUNG [Concomitant]
     Indication: FUNGAL INFECTION
     Route: 064

REACTIONS (3)
  - MATERNAL DRUGS AFFECTING FOETUS [None]
  - TURNER'S SYNDROME [None]
  - HYPOPLASTIC LEFT HEART SYNDROME [None]
